FAERS Safety Report 8016227-6 (Version None)
Quarter: 2011Q4

REPORT INFORMATION
  Report Type: 
  Country: None (occurrence: None)
  Receive Date: 20111230
  Receipt Date: 20111216
  Transmission Date: 20120403
  Serious: Yes (Other)
  Sender: FDA-Public Use
  Company Number: US-ELI_LILLY_AND_COMPANY-US201110000825

PATIENT
  Age: 80 Year
  Sex: Male
  Weight: 77.551 kg

DRUGS (4)
  1. ALIMTA [Suspect]
     Indication: MESOTHELIOMA
     Dosage: 1000 MG, EVERY 3WEEKS
     Route: 058
     Dates: start: 20110913
  2. VITAMIN B-12 [Concomitant]
     Dosage: 1000 MG, UNK
     Route: 048
     Dates: start: 20110913
  3. FOLIC ACID [Concomitant]
     Dosage: 1 MG, UNK
     Route: 048
  4. CORTICOSTEROIDS [Concomitant]
     Dosage: 4 MG, BID
     Route: 048
     Dates: start: 20110912

REACTIONS (1)
  - THROMBOCYTOSIS [None]
